FAERS Safety Report 8419400-8 (Version None)
Quarter: 2012Q2

REPORT INFORMATION
  Report Type: 
  Country: None (occurrence: None)
  Receive Date: 20120607
  Receipt Date: 20120531
  Transmission Date: 20120825
  Serious: Yes (Hospitalization)
  Sender: FDA-Public Use
  Company Number: US-GLAXOSMITHKLINE-A0887118A

PATIENT
  Age: 47 Year
  Sex: Male
  Weight: 99.1 kg

DRUGS (1)
  1. AVANDIA [Suspect]
     Indication: DIABETES MELLITUS
     Dosage: 8MG PER DAY
     Route: 048
     Dates: start: 20001016, end: 20070801

REACTIONS (6)
  - PERCUTANEOUS CORONARY INTERVENTION [None]
  - ANGINA PECTORIS [None]
  - MYOCARDIAL INFARCTION [None]
  - STENT PLACEMENT [None]
  - CARDIAC FAILURE CONGESTIVE [None]
  - CORONARY ARTERY BYPASS [None]
